FAERS Safety Report 10529221 (Version 3)
Quarter: 2014Q4

REPORT INFORMATION
  Report Type: Spontaneous
  Country: AR (occurrence: AR)
  Receive Date: 20141020
  Receipt Date: 20141030
  Transmission Date: 20150528
  Serious: Yes (Hospitalization)
  Sender: FDA-Public Use
  Company Number: AR-MERCK-1410ARG009424

PATIENT
  Age: 63 Year
  Sex: Male

DRUGS (7)
  1. MK-0000 [Suspect]
     Active Substance: INVESTIGATIONAL PRODUCT
     Indication: HEPATITIS C
     Dosage: FREQUENCY: UNKNOWN, TOTAL DAILY DOSE:UNKNOWN, STRENGTH:UNKNOWN, ROUTE:UNKNOWN, FORMULATION:UNKNOWN
     Route: 065
     Dates: end: 2014
  2. DELTISON [Concomitant]
     Dosage: FREQUENCY: 1 PER DAY, 8 MG
  3. BACTRIM [Concomitant]
     Active Substance: SULFAMETHOXAZOLE\TRIMETHOPRIM
     Dosage: STRENGTH: 1, THREE TIMES A WEEK
  4. VICTRELIS [Suspect]
     Active Substance: BOCEPREVIR
     Indication: CHRONIC HEPATITIS C
     Dosage: TOTAL DAILY DOSE 2400MG, Q8H, STRENGTH 4 CAPSULES (200 MG EACH ONE)
     Route: 048
     Dates: start: 20140602, end: 20140902
  5. OMEPRAZOLE. [Concomitant]
     Active Substance: OMEPRAZOLE
     Dosage: STRENGTH:1, FREQUENCY:1 DAILY, TOTAL DAILY DOSE:1 (NO UNITS WERE PROVIDED)
     Route: 065
  6. MAGNESIUM (UNSPECIFIED) [Concomitant]
     Active Substance: MAGNESIUM
     Dosage: STRENGTH: 1, TOTAL DAILY DOSE: 1 (NO UNITS WERE PROVIDED)
  7. RIBAVIRIN. [Suspect]
     Active Substance: RIBAVIRIN
     Indication: HEPATITIS C
     Dosage: FREQUENCY: UNKNOWN, TOTAL DAILY DOSE:UNKNOWN, STRENGTH:UNKNOWN, ROUTE:UNKNOWN, FORMULATION:UNKNOWN
     Route: 048
     Dates: end: 2014

REACTIONS (3)
  - Fungal oesophagitis [Not Recovered/Not Resolved]
  - Blood bilirubin increased [Not Recovered/Not Resolved]
  - Candida infection [Not Recovered/Not Resolved]

NARRATIVE: CASE EVENT DATE: 20140902
